FAERS Safety Report 8532869-3 (Version None)
Quarter: 2012Q3

REPORT INFORMATION
  Report Type: 
  Country: None (occurrence: None)
  Receive Date: 20120724
  Receipt Date: 20120716
  Transmission Date: 20120928
  Serious: Yes (Death)
  Sender: FDA-Public Use
  Company Number: US-BAYER-2012-072348

PATIENT
  Age: 48 Year
  Sex: Female
  Weight: 54.422 kg

DRUGS (10)
  1. YASMIN [Suspect]
  2. MELOXICAM [Concomitant]
     Dosage: 15 MG, DAILY
     Dates: start: 20090102
  3. DRUGS FOR OBSTRUCTIVE AIRWAY DISEASES [Concomitant]
     Dosage: PRN
     Dates: start: 20090416
  4. NAPROSYN [Concomitant]
     Indication: SWELLING
  5. ADVAIR DISKUS 100/50 [Concomitant]
     Indication: ASTHMA
     Dosage: 2 TIMES/ DAILY
     Route: 055
     Dates: start: 20090416
  6. KEFLEX [Concomitant]
     Dosage: UNK
     Dates: start: 20090421
  7. DROSPIRENONE AND ETHINYL ESTRADIOL [Suspect]
  8. NAPROSYN [Concomitant]
     Indication: PAIN
     Dosage: 500 MG, BID
     Route: 048
     Dates: start: 20090106
  9. PRILOSEC [Concomitant]
     Indication: GASTROOESOPHAGEAL REFLUX DISEASE
     Dosage: 20 MG, DAILY
     Route: 048
     Dates: start: 20071203, end: 20090225
  10. HYDROCODONE [Concomitant]
     Dosage: UNK
     Dates: start: 20090421

REACTIONS (6)
  - CONTUSION [None]
  - PULMONARY EMBOLISM [None]
  - PAIN IN EXTREMITY [None]
  - ROAD TRAFFIC ACCIDENT [None]
  - CRANIOCEREBRAL INJURY [None]
  - CARDIO-RESPIRATORY ARREST [None]
